FAERS Safety Report 21174140 (Version 2)
Quarter: 2022Q3

REPORT INFORMATION
  Report Type: Spontaneous
  Country: DK (occurrence: DK)
  Receive Date: 20220804
  Receipt Date: 20220819
  Transmission Date: 20221027
  Serious: Yes (Hospitalization, Other)
  Sender: FDA-Public Use
  Company Number: DK-TEVA-2022-DK-2060171

PATIENT
  Age: 49 Year
  Sex: Female

DRUGS (12)
  1. FLUDARABINE [Suspect]
     Active Substance: FLUDARABINE PHOSPHATE
     Indication: Acute myeloid leukaemia
     Route: 065
  2. POSACONAZOLE [Suspect]
     Active Substance: POSACONAZOLE
     Indication: Antifungal prophylaxis
     Dosage: 300 MG
     Route: 065
  3. TERBINAFINE [Suspect]
     Active Substance: TERBINAFINE
     Indication: Fusarium infection
     Dosage: 250MG/DAY TO 500MG THRICE DAILY.
     Route: 065
  4. CYTARABINE [Suspect]
     Active Substance: CYTARABINE
     Indication: Acute myeloid leukaemia
     Route: 065
  5. IDARUBICIN [Suspect]
     Active Substance: IDARUBICIN
     Indication: Acute myeloid leukaemia
     Route: 065
  6. GEMTUZUMAB OZOGAMICIN [Suspect]
     Active Substance: GEMTUZUMAB OZOGAMICIN
     Indication: Acute myeloid leukaemia
     Route: 065
  7. AMPHOTERICIN B [Suspect]
     Active Substance: AMPHOTERICIN B
     Indication: Fusarium infection
     Dosage: 3 MG/KG DAILY;
     Route: 042
  8. VORICONAZOLE [Suspect]
     Active Substance: VORICONAZOLE
     Indication: Fusarium infection
     Dosage: 200MG TO 400MG
     Route: 042
  9. VORICONAZOLE [Suspect]
     Active Substance: VORICONAZOLE
     Dosage: 200MG TO 1000MG
     Route: 048
  10. AMPHOTERICIN B [Suspect]
     Active Substance: AMPHOTERICIN B
     Indication: Fusarium infection
     Dosage: THREE TIMES A WEEK, 10 ML SOLUTION
     Route: 037
  11. METHYLPREDNISOLONE [Concomitant]
     Active Substance: METHYLPREDNISOLONE
     Indication: Fusarium infection
     Dosage: 5 MG
     Route: 065
  12. ISOTONIC GLUCOSE [Concomitant]
     Indication: Fusarium infection
     Dosage: 2 ML
     Route: 065

REACTIONS (11)
  - Neutropenia [Recovered/Resolved]
  - Metabolic acidosis [Unknown]
  - Renal failure [Unknown]
  - Neurotoxicity [Unknown]
  - Peripheral sensory neuropathy [Unknown]
  - Ataxia [Recovering/Resolving]
  - Gait disturbance [Recovering/Resolving]
  - Muscle spasms [Recovered/Resolved]
  - Diplopia [Unknown]
  - Optic atrophy [Unknown]
  - Drug ineffective [Unknown]
